FAERS Safety Report 8204895-5 (Version None)
Quarter: 2012Q1

REPORT INFORMATION
  Report Type: 
  Country: None (occurrence: None)
  Receive Date: 20120313
  Receipt Date: 20120306
  Transmission Date: 20120608
  Serious: Yes (Life-Threatening, Hospitalization)
  Sender: FDA-Public Use
  Company Number: ES-BAXTER-2012BH006874

PATIENT
  Age: 61 Year
  Sex: Female
  Weight: 108 kg

DRUGS (8)
  1. PROPAFENONE HCL [Concomitant]
     Indication: SUPRAVENTRICULAR TACHYCARDIA
     Route: 048
     Dates: end: 20120109
  2. DOCETAXEL [Suspect]
     Indication: BREAST CANCER
     Route: 042
     Dates: start: 20111212, end: 20120104
  3. FUROSEMIDE [Concomitant]
     Indication: HYPERTENSION
     Route: 048
  4. CYCLOPHOSPHAMIDE [Suspect]
     Indication: BREAST CANCER
     Route: 042
     Dates: start: 20111212, end: 20120104
  5. ASPIRIN [Concomitant]
     Indication: PRODUCT USED FOR UNKNOWN INDICATION
     Route: 065
  6. COZAAR [Concomitant]
     Indication: HYPERTENSION
     Route: 048
     Dates: end: 20120109
  7. INSPRA [Concomitant]
     Indication: HYPERTENSION
     Route: 048
     Dates: end: 20120109
  8. OMEPRAZOLE [Concomitant]
     Indication: PRODUCT USED FOR UNKNOWN INDICATION
     Route: 065

REACTIONS (3)
  - AGRANULOCYTOSIS [None]
  - SHOCK [None]
  - DIARRHOEA [None]
